FAERS Safety Report 26208376 (Version 1)
Quarter: 2025Q4

REPORT INFORMATION
  Report Type: Spontaneous
  Country: US (occurrence: US)
  Receive Date: 20251229
  Receipt Date: 20251229
  Transmission Date: 20260118
  Serious: Yes (Hospitalization)
  Sender: BRISTOL-MYERS SQUIBB COMPANY
  Company Number: US-BRISTOL-MYERS SQUIBB COMPANY-2025-173438

PATIENT
  Age: 79 Year
  Sex: Female
  Weight: 41.73 kg

DRUGS (1)
  1. ONUREG [Suspect]
     Active Substance: AZACITIDINE
     Indication: Acute myeloid leukaemia
     Dosage: DAILY ON DAYS 1-14 THEN 14 DAYS OFF
     Route: 048
     Dates: end: 202512

REACTIONS (1)
  - Hospitalisation [Not Recovered/Not Resolved]
